FAERS Safety Report 12444181 (Version 1)
Quarter: 2016Q2

REPORT INFORMATION
  Report Type: Spontaneous
  Country: US (occurrence: US)
  Receive Date: 20160607
  Receipt Date: 20160607
  Transmission Date: 20160815
  Serious: No
  Sender: FDA-Public Use
  Company Number: US-SA-2016SA062863

PATIENT
  Age: 54 Year
  Sex: Female

DRUGS (2)
  1. TOUJEO [Suspect]
     Active Substance: INSULIN GLARGINE
     Indication: TYPE 2 DIABETES MELLITUS
     Dosage: DOSE:16 UNIT(S)
     Route: 065
     Dates: start: 201603
  2. SOLOSTAR [Concomitant]
     Active Substance: DEVICE
     Indication: TYPE 2 DIABETES MELLITUS
     Dates: start: 201603

REACTIONS (8)
  - Condition aggravated [Unknown]
  - Diarrhoea [Unknown]
  - Vomiting [Unknown]
  - Peripheral swelling [Unknown]
  - Gait disturbance [Unknown]
  - Nausea [Unknown]
  - Pain [Unknown]
  - Rash macular [Unknown]
